FAERS Safety Report 4683822-1 (Version None)
Quarter: 2005Q2

REPORT INFORMATION
  Report Type: 
  Country: None (occurrence: None)
  Receive Date: 20050606
  Receipt Date: 20050606
  Transmission Date: 20051028
  Serious: Yes (Hospitalization)
  Sender: FDA-Public Use
  Company Number: None

PATIENT
  Age: 85 Year
  Sex: Male

DRUGS (12)
  1. DIGOXIN [Suspect]
     Dosage: 0.125MG QD
  2. COUMADIN [Suspect]
     Dosage: 4MG    QD
  3. NEURONTIN [Concomitant]
  4. THEOPHYLLINE [Concomitant]
  5. HYTRIN [Concomitant]
  6. ASCORBIC ACID [Concomitant]
  7. CIPRO [Concomitant]
  8. TYLENOL (CAPLET) [Concomitant]
  9. MACROBID [Concomitant]
  10. DIABETA [Concomitant]
  11. CASODEX [Concomitant]
  12. SINEMET [Concomitant]

REACTIONS (5)
  - CARDIOACTIVE DRUG LEVEL INCREASED [None]
  - DEHYDRATION [None]
  - INTERNATIONAL NORMALISED RATIO INCREASED [None]
  - LETHARGY [None]
  - SEPSIS [None]
